FAERS Safety Report 14450835 (Version 1)
Quarter: 2018Q1

REPORT INFORMATION
  Report Type: Spontaneous
  Country: US (occurrence: US)
  Receive Date: 20180126
  Receipt Date: 20180126
  Transmission Date: 20180509
  Serious: Yes (Hospitalization)
  Sender: FDA-Public Use
  Company Number: None

PATIENT
  Age: 89 Year
  Sex: Female

DRUGS (11)
  1. CIPROFLOXACIN. [Concomitant]
     Active Substance: CIPROFLOXACIN
  2. BISAC EVAC [Concomitant]
  3. MORPHONE SUL [Concomitant]
  4. DIVALPROEX [Concomitant]
     Active Substance: DIVALPROEX SODIUM
  5. NUPLAZID [Suspect]
     Active Substance: PIMAVANSERIN TARTRATE
     Indication: PARKINSON^S DISEASE
     Dosage: 2 TABS (34MG) PO DAILY
     Route: 048
     Dates: start: 20160817, end: 20180124
  6. SENNA [Concomitant]
     Active Substance: SENNA LEAF\SENNOSIDES\SENNOSIDES A AND B
  7. AMLODIPINE [Concomitant]
     Active Substance: AMLODIPINE BESYLATE
  8. POTASSIUM [Concomitant]
     Active Substance: POTASSIUM
  9. FUROSEMIDE. [Concomitant]
     Active Substance: FUROSEMIDE
  10. LORAZEPAM. [Concomitant]
     Active Substance: LORAZEPAM
  11. DEPAKOTE [Concomitant]
     Active Substance: DIVALPROEX SODIUM

REACTIONS (1)
  - Hospice care [None]

NARRATIVE: CASE EVENT DATE: 20180125
